FAERS Safety Report 6647565-7 (Version None)
Quarter: 2010Q1

REPORT INFORMATION
  Report Type: 
  Country: None (occurrence: None)
  Receive Date: 20100323
  Receipt Date: 20100312
  Transmission Date: 20100710
  Serious: Yes (Life-Threatening, Hospitalization)
  Sender: FDA-Public Use
  Company Number: DE-AMGEN-US398038

PATIENT
  Sex: Female
  Weight: 65 kg

DRUGS (7)
  1. ENBREL [Suspect]
     Indication: RHEUMATOID ARTHRITIS
     Route: 058
     Dates: start: 20081118, end: 20091015
  2. RALOXIFENE HCL [Concomitant]
     Route: 065
  3. LEVOTHYROXINE SODIUM [Concomitant]
     Route: 065
  4. METEX [Concomitant]
     Indication: RHEUMATOID ARTHRITIS
     Route: 058
     Dates: start: 20000101, end: 20091001
  5. METEX [Concomitant]
     Route: 058
     Dates: start: 20100201
  6. PREDNISOLONE [Concomitant]
     Indication: RHEUMATOID ARTHRITIS
     Route: 048
     Dates: start: 20000101, end: 20100201
  7. PREDNISOLONE [Concomitant]
     Route: 048
     Dates: start: 20100201

REACTIONS (2)
  - INFLAMMATORY PSEUDOTUMOUR [None]
  - PANCREATITIS CHRONIC [None]
